FAERS Safety Report 9173625 (Version 1)
Quarter: 2013Q1

REPORT INFORMATION
  Report Type: Spontaneous
  Country: US (occurrence: None)
  Receive Date: 20130318
  Receipt Date: 20130318
  Transmission Date: 20140127
  Serious: No
  Sender: FDA-Public Use
  Company Number: None

PATIENT
  Sex: 0

DRUGS (2)
  1. ARANESP [Suspect]
  2. ARANESP EPOEITIN ALFA [Concomitant]

REACTIONS (1)
  - No adverse event [None]
